FAERS Safety Report 16483238 (Version 1)
Quarter: 2019Q2

REPORT INFORMATION
  Report Type: Spontaneous
  Country: US (occurrence: US)
  Receive Date: 20190516
  Receipt Date: 20190516
  Transmission Date: 20190711
  Serious: Yes (Hospitalization)
  Sender: FDA-Public Use
  Company Number: None

PATIENT
  Sex: Female

DRUGS (5)
  1. PREDNISONE TAB [Concomitant]
     Active Substance: PREDNISONE
  2. AZATHIOPRINE TAB [Concomitant]
  3. SIROLIMUS TAB [Concomitant]
     Active Substance: SIROLIMUS
  4. FLUCONAZOLE TAB [Concomitant]
  5. SILDENAFIL 20MG TAB [Suspect]
     Active Substance: SILDENAFIL
     Indication: DRUG THERAPY
     Route: 048
     Dates: start: 20180531

REACTIONS (1)
  - Device malfunction [None]
